FAERS Safety Report 24732549 (Version 2)
Quarter: 2025Q1

REPORT INFORMATION
  Report Type: Report from Study
  Country: CA (occurrence: CA)
  Receive Date: 20241213
  Receipt Date: 20250102
  Transmission Date: 20250409
  Serious: Yes (Hospitalization)
  Sender: JOHNSON AND JOHNSON
  Company Number: CA-JNJFOC-20241218995

PATIENT
  Age: 42 Year
  Sex: Male
  Weight: 88 kg

DRUGS (2)
  1. SIMPONI [Suspect]
     Active Substance: GOLIMUMAB
     Indication: Colitis ulcerative
     Route: 041
  2. SIMPONI [Suspect]
     Active Substance: GOLIMUMAB
     Route: 041

REACTIONS (2)
  - Varicella [Unknown]
  - Off label use [Unknown]

NARRATIVE: CASE EVENT DATE: 20241201
